FAERS Safety Report 8529673-9 (Version None)
Quarter: 2012Q3

REPORT INFORMATION
  Report Type: 
  Country: None (occurrence: None)
  Receive Date: 20120723
  Receipt Date: 20120717
  Transmission Date: 20120928
  Serious: No
  Sender: FDA-Public Use
  Company Number: US-BAYER-2012-072714

PATIENT

DRUGS (2)
  1. ACETAMINOPHEN [Suspect]
  2. ALEVE (CAPLET) [Suspect]

REACTIONS (1)
  - DRUG INEFFECTIVE [None]
